FAERS Safety Report 6107829-2 (Version None)
Quarter: 2009Q1

REPORT INFORMATION
  Report Type: 
  Country: None (occurrence: None)
  Receive Date: 20090305
  Receipt Date: 20090305
  Transmission Date: 20090719
  Serious: Yes (Hospitalization)
  Sender: FDA-Public Use
  Company Number: None

PATIENT
  Sex: Female
  Weight: 181.4388 kg

DRUGS (2)
  1. COUMADIN [Suspect]
     Indication: DEEP VEIN THROMBOSIS
     Dosage: 10 MG; 12.5 MG
     Dates: start: 20040901
  2. COUMADIN [Suspect]
     Dates: start: 20040901

REACTIONS (7)
  - ANAEMIA [None]
  - COAGULOPATHY [None]
  - INTERNATIONAL NORMALISED RATIO INCREASED [None]
  - MUSCLE STRAIN [None]
  - OBESITY [None]
  - PAIN [None]
  - RETROPERITONEAL HAEMATOMA [None]
